FAERS Safety Report 4780517-0 (Version None)
Quarter: 2005Q3

REPORT INFORMATION
  Report Type: 
  Country: None (occurrence: None)
  Receive Date: 20050926
  Receipt Date: 20050913
  Transmission Date: 20060218
  Serious: Yes (Other)
  Sender: FDA-Public Use
  Company Number: 2005BI017364

PATIENT
  Age: 42 Year
  Sex: Female

DRUGS (1)
  1. AVONEX [Suspect]
     Indication: MULTIPLE SCLEROSIS
     Dosage: 30 UG; QW IM
     Route: 030
     Dates: start: 20050701, end: 20050801

REACTIONS (7)
  - HYPERSENSITIVITY [None]
  - HYPERTENSION [None]
  - OEDEMA PERIPHERAL [None]
  - PHARYNGEAL OEDEMA [None]
  - RASH GENERALISED [None]
  - SKIN SWELLING [None]
  - SWELLING FACE [None]
